FAERS Safety Report 18655672 (Version 1)
Quarter: 2020Q4

REPORT INFORMATION
  Report Type: Spontaneous
  Country: US (occurrence: US)
  Receive Date: 20201223
  Receipt Date: 20201223
  Transmission Date: 20210114
  Serious: No
  Sender: FDA-Public Use
  Company Number: US-TAKEDA-2020TUS058833

PATIENT
  Sex: Female
  Weight: 79 kg

DRUGS (5)
  1. TRINTELLIX [Suspect]
     Active Substance: VORTIOXETINE HYDROBROMIDE
     Indication: GENERALISED ANXIETY DISORDER
     Dosage: 10 MILLIGRAM
     Route: 065
  2. TRAZODONE [Concomitant]
     Active Substance: TRAZODONE HYDROCHLORIDE
     Dosage: 100 MILLIGRAM
     Route: 065
  3. TRINTELLIX [Suspect]
     Active Substance: VORTIOXETINE HYDROBROMIDE
     Dosage: 20 MILLIGRAM
     Route: 065
  4. TRINTELLIX [Suspect]
     Active Substance: VORTIOXETINE HYDROBROMIDE
     Indication: DEPRESSION
     Dosage: 5 MILLIGRAM
     Route: 065
  5. VALIUM [Concomitant]
     Active Substance: DIAZEPAM
     Dosage: 10 MILLIGRAM
     Route: 065

REACTIONS (13)
  - Functional gastrointestinal disorder [Unknown]
  - Oral discomfort [Unknown]
  - Diarrhoea [Unknown]
  - Dysacusis [Unknown]
  - Nausea [Unknown]
  - Muscular weakness [Unknown]
  - Hunger [Unknown]
  - Abdominal discomfort [Unknown]
  - Hypoacusis [Unknown]
  - Vomiting [Unknown]
  - Weight increased [Unknown]
  - Dizziness [Unknown]
  - Adverse event [Unknown]
